FAERS Safety Report 18363724 (Version 2)
Quarter: 2020Q4

REPORT INFORMATION
  Report Type: Report from Study
  Country: US (occurrence: US)
  Receive Date: 20201009
  Receipt Date: 20201022
  Transmission Date: 20210114
  Serious: Yes (Death, Hospitalization)
  Sender: FDA-Public Use
  Company Number: US-JNJFOC-A-NJ2020-206916

PATIENT
  Age: 79 Year
  Sex: Male

DRUGS (1)
  1. OPSUMIT [Suspect]
     Active Substance: MACITENTAN
     Indication: PULMONARY ARTERIAL HYPERTENSION
     Dosage: 10 MG, QD
     Route: 048
     Dates: start: 20190529

REACTIONS (8)
  - Splenectomy [Unknown]
  - Blood count abnormal [Unknown]
  - Pancreatic disorder [Unknown]
  - Haemoptysis [Unknown]
  - Pneumonia [Unknown]
  - Back disorder [Not Recovered/Not Resolved]
  - Death [Fatal]
  - Sepsis [Unknown]

NARRATIVE: CASE EVENT DATE: 20200916
